FAERS Safety Report 5446460-9 (Version None)
Quarter: 2007Q3

REPORT INFORMATION
  Report Type: 
  Country: None (occurrence: None)
  Receive Date: 20070907
  Receipt Date: 20070726
  Transmission Date: 20080115
  Serious: Yes (Other)
  Sender: FDA-Public Use
  Company Number: DK-ROCHE-508931

PATIENT
  Age: 25 Year
  Sex: Female
  Weight: 65 kg

DRUGS (1)
  1. ROACCUTAN [Suspect]
     Indication: ACNE
     Dosage: DOSING REGIMEN REPORTED AS: 1 G ISOTRETINOIN PER KG BODYWEIGHT DAILY.
     Route: 048
     Dates: start: 19920101, end: 19950101

REACTIONS (2)
  - MUCOUS MEMBRANE DISORDER [None]
  - SINUSITIS [None]
